FAERS Safety Report 7167809-5 (Version None)
Quarter: 2010Q4

REPORT INFORMATION
  Report Type: 
  Country: None (occurrence: None)
  Receive Date: 20101216
  Receipt Date: 20101203
  Transmission Date: 20110411
  Serious: Yes (Hospitalization)
  Sender: FDA-Public Use
  Company Number: NL-ELI_LILLY_AND_COMPANY-NL201012001118

PATIENT
  Sex: Female

DRUGS (24)
  1. FORTEO [Suspect]
     Indication: OSTEOPOROSIS
     Dosage: 20 UG, DAILY (1/D)
     Route: 058
     Dates: start: 20101122, end: 20101126
  2. FORTEO [Suspect]
     Dosage: UNK, UNKNOWN
     Route: 065
     Dates: start: 20101203
  3. ACETAZOLAMIDE [Concomitant]
     Indication: GLAUCOMA
     Dosage: 250 MG, QOD
     Route: 048
  4. ACETYLCYSTEINE [Concomitant]
     Indication: CHRONIC OBSTRUCTIVE PULMONARY DISEASE
     Dosage: 600 MG, DAILY (1/D)
     Route: 048
  5. ALENDRONIC ACID [Concomitant]
     Indication: GLAUCOMA
     Dosage: 70 MG, WEEKLY (1/W)
     Route: 048
  6. BIMATOPROST [Concomitant]
     Indication: GLAUCOMA
     Dosage: 0.3MG/ML UNK, DAILY (1/D)
     Route: 047
  7. CALCIUM CARBONATE [Concomitant]
     Indication: OSTEOPOROSIS
     Dosage: 1.25 G, DAILY (1/D)
     Route: 065
  8. CALCIUM CARBONATE W/COLECALCIFEROL [Concomitant]
     Indication: OSTEOPOROSIS
     Dosage: UNK UNK, DAILY (1/D)
     Route: 048
  9. CLARITROMYCINE [Concomitant]
     Indication: CHRONIC OBSTRUCTIVE PULMONARY DISEASE
     Dosage: 500 MG, DAILY (1/D)
     Route: 048
  10. COLECALCIFEROL [Concomitant]
     Indication: VITAMIN D DEFICIENCY
     Dosage: 50,000 IE/ML, MONTHLY (1/M)
     Route: 048
  11. DICLOFENAC W/MISOPROSTOL [Concomitant]
     Indication: PAIN
     Dosage: 50 MG/ 200UG, AS NEEDED
     Route: 048
  12. ETHINYL ESTRADIOL [Concomitant]
     Indication: CONTRACEPTION
     Dosage: 30/150 UG, DAILY (1/D)
     Route: 048
  13. FLUTICASONE PROPIONATE [Concomitant]
     Indication: CHRONIC OBSTRUCTIVE PULMONARY DISEASE
     Dosage: 50MG/120 DO, UNKNOWN
     Route: 065
  14. FORMOTEROL FUMARATE [Concomitant]
     Indication: CHRONIC OBSTRUCTIVE PULMONARY DISEASE
     Dosage: 12UG/DO100 UNK, 2/D
     Route: 055
  15. FUROSEMIDE [Concomitant]
     Indication: FLUID REPLACEMENT
     Dosage: 40 MG, DAILY (1/D)
     Route: 048
  16. IBUPROFEN [Concomitant]
     Indication: PAIN
     Dosage: 600 MG, 2/D
     Route: 048
  17. IPRATROPIUM BROMIDE [Concomitant]
     Indication: CHRONIC OBSTRUCTIVE PULMONARY DISEASE
     Dosage: 20UG/DO 200 UNK, 4/D
     Route: 055
  18. IPRATROPIUM /00391402/ [Concomitant]
     Indication: CHRONIC OBSTRUCTIVE PULMONARY DISEASE
     Dosage: 250UG/ML UNK,
     Route: 048
  19. METOCLOPRAMIDE [Concomitant]
     Indication: NAUSEA
     Dosage: 10 MG, 3/D
     Route: 048
  20. PANTOPRAZOLE [Concomitant]
     Indication: ABDOMINAL DISCOMFORT
     Dosage: 40 MG, 2/D
     Route: 048
  21. CODEINE PHOSPHATE AND ACETAMINOPHEN [Concomitant]
     Indication: PAIN
     Dosage: 500MG/10ML, 3/D
     Route: 048
  22. PREDNISOLONE [Concomitant]
     Indication: CHRONIC OBSTRUCTIVE PULMONARY DISEASE
     Dosage: 5 MG, 2/D
     Route: 065
  23. SALBUTAMOL [Concomitant]
     Indication: CHRONIC OBSTRUCTIVE PULMONARY DISEASE
     Dosage: 100UG/DO 200 DO
     Route: 055
  24. SPIRONOLACTONE [Concomitant]
     Indication: URINARY INCONTINENCE
     Dosage: 25 MG, QOD
     Route: 065

REACTIONS (2)
  - BONE PAIN [None]
  - HOSPITALISATION [None]
